FAERS Safety Report 5201641-4 (Version None)
Quarter: 2006Q4

REPORT INFORMATION
  Report Type: 
  Country: None (occurrence: None)
  Receive Date: 20061006
  Receipt Date: 20050811
  Transmission Date: 20070319
  Serious: Yes (Disabling)
  Sender: FDA-Public Use
  Company Number: 200511394BWH

PATIENT
  Sex: Female
  Weight: 63.5036 kg

DRUGS (13)
  1. CIPRO [Suspect]
     Indication: URINARY TRACT INFECTION
     Dosage: 250 MG, BID, ORAL
     Route: 048
     Dates: start: 20050615, end: 20050622
  2. PREDNISONE EYE DROPS [Concomitant]
  3. ACTONEL [Concomitant]
  4. IRESSA [Concomitant]
  5. ATENOLOL [Concomitant]
  6. PLAVIX [Concomitant]
  7. CALCIUM [Concomitant]
  8. VITAMIN D [Concomitant]
  9. PREVACID [Concomitant]
  10. LEXAPRO [Concomitant]
  11. DOCUSATE [Concomitant]
  12. ENDOMETHASIN [Concomitant]
  13. IBUPROFEN [Concomitant]

REACTIONS (6)
  - ARTHRALGIA [None]
  - GAIT DISTURBANCE [None]
  - JOINT SWELLING [None]
  - PAIN IN EXTREMITY [None]
  - TENDON DISORDER [None]
  - TENDONITIS [None]
